FAERS Safety Report 9335247 (Version 1)
Quarter: 2013Q2

REPORT INFORMATION
  Report Type: Spontaneous
  Country: US (occurrence: US)
  Receive Date: 20130606
  Receipt Date: 20130606
  Transmission Date: 20140414
  Serious: Yes (Hospitalization, Other)
  Sender: FDA-Public Use
  Company Number: US-B.I. PHARMACEUTICALS,INC./RIDGEFIELD-2013-BI-16068GD

PATIENT
  Age: 86 Year
  Sex: Male

DRUGS (3)
  1. PRADAXA [Suspect]
     Indication: ATRIAL FIBRILLATION
     Dosage: 300 MG
  2. PRADAXA [Suspect]
     Indication: CEREBROVASCULAR ACCIDENT PROPHYLAXIS
  3. CLOPIDOGREL [Suspect]
     Indication: THROMBOSIS IN DEVICE
     Dosage: 75 MG

REACTIONS (6)
  - Subdural haematoma [Recovered/Resolved]
  - Intracranial pressure increased [Recovered/Resolved]
  - Headache [Recovered/Resolved]
  - Brain midline shift [Recovered/Resolved]
  - Neurological decompensation [Recovered/Resolved]
  - Brain herniation [Recovered/Resolved]
